APPROVED DRUG PRODUCT: JAVADIN
Active Ingredient: CLONIDINE HYDROCHLORIDE
Strength: 0.02MG/ML
Dosage Form/Route: SOLUTION;ORAL
Application: N220256 | Product #001
Applicant: AZURITY PHARMACEUTICALS INC
Approved: Oct 23, 2025 | RLD: Yes | RS: Yes | Type: RX

PATENTS:
Patent 12233049 | Expires: Jul 15, 2042
Patent 12440474 | Expires: Jul 15, 2042